FAERS Safety Report 19521274 (Version 1)
Quarter: 2021Q3

REPORT INFORMATION
  Report Type: Report from Study
  Country: US (occurrence: US)
  Receive Date: 20210712
  Receipt Date: 20210712
  Transmission Date: 20211014
  Serious: No
  Sender: FDA-Public Use
  Company Number: NVSC2021US148371

PATIENT
  Sex: Male

DRUGS (2)
  1. ENTRESTO [Suspect]
     Active Substance: SACUBITRIL\VALSARTAN
     Indication: CARDIAC FAILURE
     Dosage: 24.26 MG, ONCE2SDO
     Route: 048
     Dates: start: 201910
  2. REPATHA [Suspect]
     Active Substance: EVOLOCUMAB
     Indication: BLOOD CHOLESTEROL
     Dosage: UNK UNK, BIW
     Route: 058
     Dates: start: 202101

REACTIONS (2)
  - Drug hypersensitivity [Unknown]
  - Weight increased [Unknown]

NARRATIVE: CASE EVENT DATE: 2020
